FAERS Safety Report 9700991 (Version 1)
Quarter: 2013Q4

REPORT INFORMATION
  Report Type: Spontaneous
  Country: IL (occurrence: None)
  Receive Date: 20131119
  Receipt Date: 20131119
  Transmission Date: 20140711
  Serious: Yes (Death, Hospitalization)
  Sender: FDA-Public Use
  Company Number: UTC-040316

PATIENT
  Age: 73 Year
  Sex: Female

DRUGS (13)
  1. REMODULIN [Suspect]
     Indication: PULMONARY ARTERIAL HYPERTENSION
     Dosage: 0.1 MG PER DAY/3.2 UNITS PER HOUR
     Route: 058
     Dates: start: 20130815
  2. ACICLOVIR (UNKNOWN) [Concomitant]
  3. ASPIRIN (ACETYLSALICYLIC ACID) (UNKNOWN) (ACETYLSALICYLIC ACID) [Concomitant]
  4. CELEXANE (ENOXAPARIN) (INJECTION) [Concomitant]
  5. CYMBALTA (DULOXETINE HYDROCHLORIDE) (UNKNOWN) [Concomitant]
  6. EDRONAX (REBOXETINE) (TABLET) [Concomitant]
  7. FUSID (FUROSEMIDE) (AMP IV) [Concomitant]
  8. LOSARTAN (UNKNOWN) [Concomitant]
  9. MORPHINE (AMP IV) [Concomitant]
  10. NOCTURNO FC (ZOPICLONE)(TABLET) [Concomitant]
  11. POTASSIUM (SOLUTION) [Concomitant]
  12. SIMVASTATIN (TABLET) [Concomitant]
  13. REAVTIO (SILDENAFIL CITRATE) (TABLET) [Concomitant]

REACTIONS (4)
  - Pulmonary hypertension [None]
  - Pneumonia [None]
  - Respiratory failure [None]
  - General physical health deterioration [None]
